FAERS Safety Report 21046425 (Version 1)
Quarter: 2022Q3

REPORT INFORMATION
  Report Type: Spontaneous
  Country: US (occurrence: None)
  Receive Date: 20220705
  Receipt Date: 20220705
  Transmission Date: 20221027
  Serious: Yes (Hospitalization)
  Sender: FDA-Public Use
  Company Number: None

PATIENT
  Age: 52 Year
  Sex: Female

DRUGS (3)
  1. LORBRENA [Suspect]
     Active Substance: LORLATINIB
     Indication: Lung neoplasm malignant
     Dosage: 75MG DAILY ORAL?
     Route: 048
     Dates: start: 202206
  2. LORBRENA [Suspect]
     Active Substance: LORLATINIB
     Indication: Bronchial carcinoma
  3. LORBRENA [Suspect]
     Active Substance: LORLATINIB
     Indication: Metastases to pleura

REACTIONS (4)
  - Eyelid ptosis [None]
  - Extraocular muscle disorder [None]
  - Malignant muscle neoplasm [None]
  - Bone cancer [None]

NARRATIVE: CASE EVENT DATE: 20220626
